FAERS Safety Report 8595715-8 (Version None)
Quarter: 2012Q3

REPORT INFORMATION
  Report Type: 
  Country: None (occurrence: None)
  Receive Date: 20120815
  Receipt Date: 20120814
  Transmission Date: 20120928
  Serious: Yes (Death)
  Sender: FDA-Public Use
  Company Number: GB-ROCHE-1084159

PATIENT
  Sex: Female

DRUGS (7)
  1. METHOTREXATE [Concomitant]
  2. SENNA [Concomitant]
  3. OMEPRAZOLE [Concomitant]
  4. NEURONTIN [Concomitant]
  5. ALENDRONATE SODIUM [Concomitant]
  6. MABTHERA [Suspect]
     Indication: PRODUCT USED FOR UNKNOWN INDICATION
     Dates: start: 20080626
  7. LEVOTHYROXINE SODIUM [Concomitant]

REACTIONS (1)
  - BRONCHOPNEUMONIA [None]
